FAERS Safety Report 20121159 (Version 2)
Quarter: 2022Q1

REPORT INFORMATION
  Report Type: Report from Study
  Country: US (occurrence: US)
  Receive Date: 20211127
  Receipt Date: 20220112
  Transmission Date: 20220423
  Serious: Yes (Death, Life-Threatening, Hospitalization, Other)
  Sender: FDA-Public Use
  Company Number: US-UNITED THERAPEUTICS-UNT-2021-024287

PATIENT
  Sex: Female

DRUGS (2)
  1. TREPROSTINIL SODIUM [Suspect]
     Active Substance: TREPROSTINIL SODIUM
     Indication: Pulmonary arterial hypertension
     Dosage: UNK
     Dates: start: 20210904
  2. TREPROSTINIL SODIUM [Suspect]
     Active Substance: TREPROSTINIL SODIUM
     Dosage: 24 ?G, QID
     Dates: start: 2021

REACTIONS (5)
  - Acute respiratory failure [Fatal]
  - Cardiac failure acute [Fatal]
  - Pulmonary hypertension [Fatal]
  - Chronic obstructive pulmonary disease [Unknown]
  - Fluid retention [Unknown]

NARRATIVE: CASE EVENT DATE: 20210101
